FAERS Safety Report 10154625 (Version 4)
Quarter: 2014Q4

REPORT INFORMATION
  Report Type: Report from Study
  Country: ID (occurrence: ID)
  Receive Date: 20140506
  Receipt Date: 20141222
  Transmission Date: 20150528
  Serious: Yes (Hospitalization)
  Sender: FDA-Public Use
  Company Number: ID-ROCHE-1396108

PATIENT
  Age: 72 Year
  Sex: Male
  Weight: 50 kg

DRUGS (5)
  1. MECOBALAMIN [Concomitant]
     Active Substance: METHYLCOBALAMIN
     Indication: MYOPATHY
  2. RITUXIMAB [Suspect]
     Active Substance: RITUXIMAB
     Indication: DIFFUSE LARGE B-CELL LYMPHOMA
     Dosage: DATE OF MOST RECENT DOSE OF RITUXIMAB PRIOR TO EVENT: 25/APR/2014
     Route: 042
     Dates: start: 20140425
  3. MECOBALAMIN [Concomitant]
     Active Substance: METHYLCOBALAMIN
     Indication: NEUROPATHY PERIPHERAL
     Route: 048
     Dates: start: 20140703, end: 20140725
  4. CIPROFLOXACIN. [Concomitant]
     Active Substance: CIPROFLOXACIN
     Indication: BRONCHITIS
     Route: 048
     Dates: start: 20140715, end: 20140722
  5. N-ACETYLCYSTEINE [Concomitant]
     Active Substance: ACETYLCYSTEINE
     Indication: BRONCHITIS
     Route: 048
     Dates: start: 20140715, end: 20140725

REACTIONS (1)
  - Gastrointestinal obstruction [Recovered/Resolved]

NARRATIVE: CASE EVENT DATE: 20140428
